FAERS Safety Report 17977221 (Version 2)
Quarter: 2020Q3

REPORT INFORMATION
  Report Type: Report from Study
  Country: US (occurrence: US)
  Receive Date: 20200703
  Receipt Date: 20200806
  Transmission Date: 20201103
  Serious: No
  Sender: FDA-Public Use
  Company Number: US-SAGE-2020SAGE000054

PATIENT

DRUGS (5)
  1. ZULRESSO [Suspect]
     Active Substance: BREXANOLONE
     Dosage: 60 MCG/KG/HR, BAG #2 MIXED AND HUNG AT 06:15
     Route: 042
     Dates: start: 20190916, end: 20190917
  2. ZULRESSO [Suspect]
     Active Substance: BREXANOLONE
     Indication: PERINATAL DEPRESSION
     Dosage: 30 MCG/KG/HR
     Route: 042
     Dates: start: 20190916, end: 20190916
  3. ZULRESSO [Suspect]
     Active Substance: BREXANOLONE
     Dosage: 30 MCG/KG/HR
     Route: 042
     Dates: start: 20190918, end: 20190918
  4. ZULRESSO [Suspect]
     Active Substance: BREXANOLONE
     Dosage: 60 MCG/KG/HR, IV BAG #4 MIXED AT 15:14
     Route: 042
     Dates: start: 20190918, end: 20190918
  5. ZULRESSO [Suspect]
     Active Substance: BREXANOLONE
     Dosage: 90 MCG/KG/HR, BAG #3 MIXED; HUNG AT 01:00
     Route: 042
     Dates: start: 20190917, end: 20190918

REACTIONS (1)
  - Medication error [Recovered/Resolved]

NARRATIVE: CASE EVENT DATE: 20190916
